FAERS Safety Report 5120734-3 (Version None)
Quarter: 2006Q4

REPORT INFORMATION
  Report Type: 
  Country: None (occurrence: None)
  Receive Date: 20061004
  Receipt Date: 20060118
  Transmission Date: 20070319
  Serious: Yes (Hospitalization)
  Sender: FDA-Public Use
  Company Number: US-BRISTOL-MYERS SQUIBB COMPANY-13250402

PATIENT
  Age: 16 Year
  Sex: Female
  Weight: 51 kg

DRUGS (4)
  1. ABILIFY [Suspect]
     Indication: AFFECTIVE DISORDER
     Dates: start: 20050831, end: 20051217
  2. ABILIFY [Suspect]
     Dates: start: 20050831, end: 20051217
  3. EFFEXOR [Concomitant]
     Dates: start: 20050831, end: 20051217
  4. TRAZODONE HCL [Concomitant]
     Dates: start: 20050831, end: 20051217

REACTIONS (2)
  - PREGNANCY [None]
  - PREMATURE LABOUR [None]
